FAERS Safety Report 21403369 (Version 1)
Quarter: 2022Q4

REPORT INFORMATION
  Report Type: Spontaneous
  Country: AT (occurrence: None)
  Receive Date: 20221001
  Receipt Date: 20221001
  Transmission Date: 20230112
  Serious: Yes (Disabling)
  Sender: FDA-Public Use
  Company Number: None

PATIENT
  Age: 27 Year
  Sex: Male
  Weight: 71 kg

DRUGS (5)
  1. MINOXIDIL [Suspect]
     Active Substance: MINOXIDIL
     Indication: Alopecia
     Dosage: FREQUENCY : TWICE A DAY;?
     Route: 061
  2. OMEGA 3 CAPSULES [Concomitant]
  3. ZINC [Concomitant]
  4. COPPER [Concomitant]
  5. CREATINE [Concomitant]

REACTIONS (7)
  - Renal impairment [None]
  - Fatigue [None]
  - Feeling abnormal [None]
  - Collagen disorder [None]
  - Dark circles under eyes [None]
  - Erectile dysfunction [None]
  - Blood testosterone decreased [None]

NARRATIVE: CASE EVENT DATE: 20220908
